FAERS Safety Report 4441588-4 (Version None)
Quarter: 2004Q3

REPORT INFORMATION
  Report Type: 
  Country: None (occurrence: None)
  Receive Date: 20040907
  Receipt Date: 20040816
  Transmission Date: 20050211
  Serious: Yes (Life-Threatening, Hospitalization, Disabling)
  Sender: FDA-Public Use
  Company Number: 200412663JP

PATIENT
  Age: 62 Year
  Sex: Male
  Weight: 64.95 kg

DRUGS (2)
  1. TAXOTERE [Suspect]
     Indication: OSTEITIS DEFORMANS
     Route: 041
     Dates: start: 20040726, end: 20040728
  2. NEU-UP [Suspect]
     Indication: NEUTROPENIA
     Route: 058
     Dates: start: 20040802, end: 20040808

REACTIONS (23)
  - ACUTE RESPIRATORY DISTRESS SYNDROME [None]
  - ASPARTATE AMINOTRANSFERASE INCREASED [None]
  - BLOOD CHLORIDE INCREASED [None]
  - BLOOD LACTATE DEHYDROGENASE INCREASED [None]
  - BLOOD SODIUM DECREASED [None]
  - BLOOD UREA INCREASED [None]
  - BONE MARROW DEPRESSION [None]
  - C-REACTIVE PROTEIN INCREASED [None]
  - CONDITION AGGRAVATED [None]
  - DISSEMINATED INTRAVASCULAR COAGULATION [None]
  - DRUG ERUPTION [None]
  - INFECTION [None]
  - INTERSTITIAL LUNG DISEASE [None]
  - LYMPHOCYTE PERCENTAGE DECREASED [None]
  - NEUTROPENIA [None]
  - NEUTROPHIL PERCENTAGE INCREASED [None]
  - PAGET'S DISEASE OF THE VULVA [None]
  - PYREXIA [None]
  - RED BLOOD CELL COUNT DECREASED [None]
  - RESPIRATORY FAILURE [None]
  - THERAPY NON-RESPONDER [None]
  - WHITE BLOOD CELL COUNT DECREASED [None]
  - WHITE BLOOD CELL COUNT INCREASED [None]
